FAERS Safety Report 9361902 (Version 1)
Quarter: 2013Q2

REPORT INFORMATION
  Report Type: Spontaneous
  Country: JP (occurrence: JP)
  Receive Date: 20130621
  Receipt Date: 20130621
  Transmission Date: 20140414
  Serious: Yes (Other)
  Sender: FDA-Public Use
  Company Number: JP-GLAXOSMITHKLINE-B0900061A

PATIENT
  Age: 60 Year
  Sex: Male

DRUGS (3)
  1. DERMOVATE [Suspect]
     Indication: ECZEMA
     Route: 061
     Dates: start: 20130611
  2. LYRICA [Concomitant]
     Route: 048
  3. LINAGLIPTIN [Concomitant]
     Route: 048

REACTIONS (2)
  - Hypoaesthesia [Unknown]
  - Immobile [Unknown]
